FAERS Safety Report 4647463-4 (Version None)
Quarter: 2005Q2

REPORT INFORMATION
  Report Type: 
  Country: None (occurrence: None)
  Receive Date: 20050428
  Receipt Date: 20050415
  Transmission Date: 20051028
  Serious: Yes (Other)
  Sender: FDA-Public Use
  Company Number: GB-JNJFOC-20041106096

PATIENT
  Sex: Female
  Weight: 64 kg

DRUGS (9)
  1. RISPERDAL [Suspect]
     Indication: AGITATION
     Route: 049
  2. RISPERDAL [Suspect]
     Indication: PARANOIA
     Route: 049
  3. CARBAMAZEPINE [Concomitant]
     Indication: DRUG THERAPY
  4. PYRIDOXINE HCL [Concomitant]
  5. ZINERYT [Concomitant]
  6. ZINERYT [Concomitant]
     Indication: ACNE
  7. DERMOVATE [Concomitant]
  8. LORAZEPAM [Concomitant]
     Indication: AGITATION
     Dosage: 1 -2 MG BID PRN
  9. BENEFIBER [Concomitant]
     Indication: CONSTIPATION
     Dosage: 5 SCOOPS A DAY

REACTIONS (3)
  - BLOOD CORTISOL INCREASED [None]
  - HYPERPROLACTINAEMIA [None]
  - POLYCYSTIC OVARIES [None]
